FAERS Safety Report 5574408-5 (Version None)
Quarter: 2007Q4

REPORT INFORMATION
  Report Type: 
  Country: None (occurrence: None)
  Receive Date: 20071226
  Receipt Date: 20071226
  Transmission Date: 20080405
  Serious: Yes (Other)
  Sender: FDA-Public Use
  Company Number: None

PATIENT
  Age: 58 Year
  Sex: Male
  Weight: 99.7913 kg

DRUGS (2)
  1. COLD-EEZE NASAL SPRAY [Suspect]
     Indication: NASAL CONGESTION
     Dosage: ONE SPRAY INTO NOSTRIL ONCE ONLY
     Dates: start: 20050101
  2. COLD-EEZE NASAL SPRAY [Suspect]
     Indication: NASOPHARYNGITIS
     Dosage: ONE SPRAY INTO NOSTRIL ONCE ONLY
     Dates: start: 20050101

REACTIONS (3)
  - ANOSMIA [None]
  - BURNING SENSATION [None]
  - RHINALGIA [None]
